FAERS Safety Report 7194230-6 (Version None)
Quarter: 2010Q4

REPORT INFORMATION
  Report Type: 
  Country: None (occurrence: None)
  Receive Date: 20101223
  Receipt Date: 20101202
  Transmission Date: 20110411
  Serious: No
  Sender: FDA-Public Use
  Company Number: US-AMGEN-KDL434919

PATIENT

DRUGS (3)
  1. ENBREL [Suspect]
     Indication: RHEUMATOID ARTHRITIS
     Dosage: 50 MG, QWK
     Route: 058
     Dates: start: 20100801
  2. ENBREL [Suspect]
     Dates: start: 20100701
  3. TREXALL [Concomitant]
     Dosage: 1 MG, QWK
     Dates: start: 20101001

REACTIONS (9)
  - ARTHRALGIA [None]
  - BURNING SENSATION [None]
  - INJECTION SITE HAEMATOMA [None]
  - INJECTION SITE URTICARIA [None]
  - JOINT SWELLING [None]
  - MOVEMENT DISORDER [None]
  - OEDEMA PERIPHERAL [None]
  - PAIN IN EXTREMITY [None]
  - PARAESTHESIA [None]
